FAERS Safety Report 6665276-9 (Version None)
Quarter: 2010Q2

REPORT INFORMATION
  Report Type: 
  Country: None (occurrence: None)
  Receive Date: 20100402
  Receipt Date: 20100319
  Transmission Date: 20101027
  Serious: Yes (Other)
  Sender: FDA-Public Use
  Company Number: US-RB-004604-10

PATIENT
  Sex: Male

DRUGS (4)
  1. SUBUTEX [Suspect]
     Route: 064
     Dates: start: 20090101, end: 20090101
  2. SUBUTEX [Suspect]
     Route: 064
     Dates: start: 20090101, end: 20100223
  3. SUBUTEX [Suspect]
     Route: 064
     Dates: start: 20090101, end: 20090101
  4. SUBOXONE [Suspect]
     Route: 064
     Dates: start: 20090530

REACTIONS (2)
  - DRUG EXPOSURE DURING PREGNANCY [None]
  - MECONIUM STAIN [None]
